FAERS Safety Report 8223331-6 (Version None)
Quarter: 2012Q1

REPORT INFORMATION
  Report Type: 
  Country: None (occurrence: None)
  Receive Date: 20120312
  Receipt Date: 20120228
  Transmission Date: 20120608
  Serious: Yes (Death, Life-Threatening, Other)
  Sender: FDA-Public Use
  Company Number: 2012MA002690

PATIENT
  Age: 58 Year
  Sex: Male

DRUGS (16)
  1. FAMOTIDINE [Concomitant]
  2. PRAVASTATIN [Concomitant]
  3. ASPIRIN [Concomitant]
  4. DIPHENOXYLATE [Concomitant]
  5. FLORASTOR [Concomitant]
  6. ALPRAZOLAM [Concomitant]
  7. DOCUSATE SODIUM [Concomitant]
  8. CEPHALEXIN [Concomitant]
  9. HYDRALAZINE HCL [Concomitant]
  10. FOSRENOL [Concomitant]
  11. CLOTRIMAZOLE [Concomitant]
  12. HYDROCODONE [Concomitant]
  13. METOPROLOL SUCCINATE [Concomitant]
  14. FLUOXETINE [Concomitant]
  15. DIGOXIN [Suspect]
     Indication: ARRHYTHMIA
     Dosage: 0.125 MG;TIW;PO
     Route: 048
     Dates: start: 20080206, end: 20080907
  16. GLIMEPIRIDE [Concomitant]

REACTIONS (4)
  - CARDIO-RESPIRATORY ARREST [None]
  - ARTERIOSCLEROSIS [None]
  - ECONOMIC PROBLEM [None]
  - INJURY [None]
